FAERS Safety Report 5124188-2 (Version None)
Quarter: 2006Q4

REPORT INFORMATION
  Report Type: 
  Country: None (occurrence: None)
  Receive Date: 20061010
  Receipt Date: 20060720
  Transmission Date: 20070319
  Serious: No
  Sender: FDA-Public Use
  Company Number: US-BRISTOL-MYERS SQUIBB COMPANY-13448782

PATIENT
  Age: 68 Year
  Sex: Male
  Weight: 95 kg

DRUGS (11)
  1. AVAPRO [Suspect]
     Indication: HYPERTENSION
     Dates: start: 20050101
  2. DYAZIDE [Concomitant]
  3. LAMICTAL [Concomitant]
  4. LIPITOR [Concomitant]
  5. FOLIC ACID [Concomitant]
  6. FLAXSEED OIL [Concomitant]
  7. ATENOLOL [Concomitant]
  8. CHONDROITIN SULFATE + GLUCOSAMINE [Concomitant]
  9. ASPIRIN [Concomitant]
  10. VITAMIN E [Concomitant]
  11. ASCORBIC ACID [Concomitant]

REACTIONS (1)
  - DIZZINESS [None]
